FAERS Safety Report 24754784 (Version 3)
Quarter: 2025Q2

REPORT INFORMATION
  Report Type: Report from Study
  Country: US (occurrence: US)
  Receive Date: 20241219
  Receipt Date: 20250531
  Transmission Date: 20250717
  Serious: Yes (Other)
  Sender: STEMLINE THERAPEUTICS
  Company Number: US-STEMLINE THERAPEUTICS B.V.-2024-STML-US006675

PATIENT

DRUGS (1)
  1. ORSERDU [Suspect]
     Active Substance: ELACESTRANT
     Indication: Breast cancer female
     Dosage: 345 MG, DAILY
     Route: 048
     Dates: start: 20241019

REACTIONS (20)
  - Pneumonia [Unknown]
  - Angina pectoris [Unknown]
  - Vertigo [Unknown]
  - Tremor [Unknown]
  - Nervousness [Unknown]
  - Blood oestrogen abnormal [Unknown]
  - Alopecia [Unknown]
  - Pain in extremity [Unknown]
  - Oedema [Unknown]
  - Swelling [Unknown]
  - Liver disorder [Unknown]
  - Lymphadenopathy [Unknown]
  - Renal disorder [Unknown]
  - Feeling abnormal [Unknown]
  - Palpitations [Unknown]
  - Brain fog [Unknown]
  - Gallbladder disorder [Unknown]
  - Malignant neoplasm progression [Unknown]
  - Constipation [Unknown]
  - Drug ineffective [Unknown]

NARRATIVE: CASE EVENT DATE: 20240101
